FAERS Safety Report 10179946 (Version 1)
Quarter: 2014Q2

REPORT INFORMATION
  Report Type: Spontaneous
  Country: US (occurrence: US)
  Receive Date: 20140519
  Receipt Date: 20140519
  Transmission Date: 20141212
  Serious: No
  Sender: FDA-Public Use
  Company Number: US-BRISTOL-MYERS SQUIBB COMPANY-18973552

PATIENT
  Age: 67 Year
  Sex: Male
  Weight: 132.42 kg

DRUGS (11)
  1. BARACLUDE [Suspect]
     Indication: LIVER DISORDER
     Dosage: 1MG TAB(PATIENT STATES SHE CUTS IN HALF AND GIVES EVERY 3RD DAY)
  2. FUROSEMIDE [Concomitant]
     Dosage: 1 + 1.5TABLET MORNING AND EVENING
  3. METOLAZONE [Concomitant]
  4. LISINOPRIL [Concomitant]
     Dosage: 2 TABS
  5. HUMULIN [Concomitant]
     Dosage: 1DF=15UNITS
  6. AMLODIPINE [Concomitant]
  7. ASPIRIN [Concomitant]
  8. ATORVASTATIN [Concomitant]
     Dosage: 1.5TABLETS DAILY
  9. GLIPIZIDE [Concomitant]
  10. ACARBOSE [Concomitant]
  11. TUMS [Concomitant]
     Dosage: WITH MEALS

REACTIONS (2)
  - Dizziness [Unknown]
  - Asthenia [Unknown]
